FAERS Safety Report 15794379 (Version 1)
Quarter: 2018Q4

REPORT INFORMATION
  Report Type: Spontaneous
  Country: US (occurrence: US)
  Receive Date: 20181213
  Receipt Date: 20181213
  Transmission Date: 20190205
  Serious: No
  Sender: FDA-Public Use
  Company Number: None

PATIENT

DRUGS (1)
  1. BENLYSTA [Suspect]
     Active Substance: BELIMUMAB
     Indication: SYSTEMIC LUPUS ERYTHEMATOSUS
     Route: 058

REACTIONS (5)
  - Headache [None]
  - Pruritus generalised [None]
  - Vomiting [None]
  - Nausea [None]
  - Myalgia [None]

NARRATIVE: CASE EVENT DATE: 20181211
